FAERS Safety Report 4990760-3 (Version None)
Quarter: 2006Q2

REPORT INFORMATION
  Report Type: 
  Country: None (occurrence: None)
  Receive Date: 20060428
  Receipt Date: 20060411
  Transmission Date: 20061013
  Serious: Yes (Hospitalization)
  Sender: FDA-Public Use
  Company Number: CA200604002219

PATIENT
  Age: 88 Year
  Sex: Female

DRUGS (13)
  1. FORTEO [Suspect]
     Indication: OSTEOPOROSIS
     Dosage: 20 UG, DAILY (1/D),
     Dates: start: 20050312
  2. FORTEO [Concomitant]
  3. PAXIL [Concomitant]
  4. INDERAL [Concomitant]
  5. MIACALCIN (CALCITONIN, SALMON) SPRAY [Concomitant]
  6. LOSEC (OMEPRAZOLE) [Concomitant]
  7. LIPITOR [Concomitant]
  8. VITAMINS NOS (VITAMINS NOS) [Concomitant]
  9. COUMADIN [Concomitant]
  10. NEURONTIN [Concomitant]
  11. ASPIRIN [Concomitant]
  12. MEMANTINE HCL [Concomitant]
  13. LAXATIVES [Concomitant]

REACTIONS (9)
  - APHASIA [None]
  - ASTHENIA [None]
  - BILE DUCT STONE [None]
  - BLOOD PRESSURE DECREASED [None]
  - BLOOD PRESSURE INCREASED [None]
  - CARDIAC FAILURE CONGESTIVE [None]
  - CHEST PAIN [None]
  - GASTROINTESTINAL DISORDER [None]
  - WHEEZING [None]
